FAERS Safety Report 9518061 (Version 2)
Quarter: 2013Q4

REPORT INFORMATION
  Report Type: Spontaneous
  Country: US (occurrence: US)
  Receive Date: 20130912
  Receipt Date: 20131002
  Transmission Date: 20140711
  Serious: No
  Sender: FDA-Public Use
  Company Number: US-PFIZER INC-2013259757

PATIENT
  Sex: Male

DRUGS (2)
  1. VIAGRA [Suspect]
     Dosage: UNK
  2. VIAGRA [Suspect]
     Dosage: UNK

REACTIONS (7)
  - Malaise [Unknown]
  - Vertigo [Unknown]
  - Nasopharyngitis [Unknown]
  - Sinus disorder [Unknown]
  - Feeling abnormal [Unknown]
  - Hypersensitivity [Unknown]
  - Dizziness [Unknown]
